FAERS Safety Report 24356712 (Version 2)
Quarter: 2024Q3

REPORT INFORMATION
  Report Type: Spontaneous
  Country: US (occurrence: US)
  Receive Date: 20240924
  Receipt Date: 20240930
  Transmission Date: 20241017
  Serious: No
  Sender: ABBVIE
  Company Number: US-ABBVIE-5933779

PATIENT
  Age: 50 Year
  Sex: Female

DRUGS (3)
  1. ELAHERE [Suspect]
     Active Substance: MIRVETUXIMAB SORAVTANSINE-GYNX
     Indication: Ovarian cancer
     Dosage: 1ST INFUSION?WE ALSO REDUCED DOSE
     Route: 042
     Dates: start: 202407, end: 202407
  2. ELAHERE [Suspect]
     Active Substance: MIRVETUXIMAB SORAVTANSINE-GYNX
     Indication: Ovarian cancer
     Dosage: FIRST AND LAST ADMIN DATE: 2024?2ND INFUSION
     Route: 042
  3. ELAHERE [Suspect]
     Active Substance: MIRVETUXIMAB SORAVTANSINE-GYNX
     Indication: Ovarian cancer
     Dosage: 3RD INFUSION
     Route: 042
     Dates: start: 20240904

REACTIONS (3)
  - Gastrointestinal disorder [Recovering/Resolving]
  - Neuropathy peripheral [Unknown]
  - Vision blurred [Not Recovered/Not Resolved]

NARRATIVE: CASE EVENT DATE: 20240101
